FAERS Safety Report 18575713 (Version 3)
Quarter: 2021Q1

REPORT INFORMATION
  Report Type: Spontaneous
  Country: US (occurrence: US)
  Receive Date: 20201203
  Receipt Date: 20210216
  Transmission Date: 20210419
  Serious: Yes (Hospitalization)
  Sender: FDA-Public Use
  Company Number: US-INTRA-CELLULAR THERAPIES, INC.-2020ICT00248

PATIENT
  Age: 21 Year
  Sex: Male
  Weight: 105.49 kg

DRUGS (8)
  1. LATUDA [Suspect]
     Active Substance: LURASIDONE HYDROCHLORIDE
     Dosage: 40 MG
     Dates: start: 2020, end: 2020
  2. LISINOPRIL. [Concomitant]
     Active Substance: LISINOPRIL
     Dosage: 20 MG, 1X/DAY
  3. HALDOL [Concomitant]
     Active Substance: HALOPERIDOL
  4. CAPLYTA [Suspect]
     Active Substance: LUMATEPERONE
     Indication: SCHIZOAFFECTIVE DISORDER
     Dosage: 42 MG, 1X/DAY
     Route: 048
     Dates: start: 20200819, end: 20201020
  5. METOPROLOL. [Concomitant]
     Active Substance: METOPROLOL
     Dosage: 25 MG, 2X/DAY
  6. LITHIUM. [Concomitant]
     Active Substance: LITHIUM
     Dosage: 450 UNK, 2X/DAY
  7. LATUDA [Suspect]
     Active Substance: LURASIDONE HYDROCHLORIDE
     Dosage: 60 MG
     Dates: end: 2020
  8. LATUDA [Suspect]
     Active Substance: LURASIDONE HYDROCHLORIDE
     Dosage: 20 MG FOR A COUPLE OF WEEKS
     Dates: start: 2020, end: 202010

REACTIONS (6)
  - Off label use [Recovered/Resolved]
  - Decreased appetite [Unknown]
  - Mania [Recovering/Resolving]
  - Schizophrenia [Recovered/Resolved]
  - Weight increased [Unknown]
  - Weight decreased [Unknown]

NARRATIVE: CASE EVENT DATE: 2020
